FAERS Safety Report 18671340 (Version 1)
Quarter: 2020Q4

REPORT INFORMATION
  Report Type: Spontaneous
  Country: JP (occurrence: JP)
  Receive Date: 20201228
  Receipt Date: 20201228
  Transmission Date: 20210114
  Serious: Yes (Hospitalization)
  Sender: FDA-Public Use
  Company Number: NVSJ2020JP003105

PATIENT

DRUGS (1)
  1. PAZOPANIB [Suspect]
     Active Substance: PAZOPANIB
     Indication: SOFT TISSUE SARCOMA
     Dosage: UNKNOWN
     Route: 048

REACTIONS (2)
  - Diarrhoea [Recovered/Resolved]
  - Dehydration [Unknown]
